FAERS Safety Report 25330495 (Version 1)
Quarter: 2025Q2

REPORT INFORMATION
  Report Type: Spontaneous
  Country: MX (occurrence: MX)
  Receive Date: 20250519
  Receipt Date: 20250519
  Transmission Date: 20250716
  Serious: Yes (Other)
  Sender: ASTELLAS
  Company Number: MX-ASTELLAS-2025-AER-025451

PATIENT
  Sex: Female

DRUGS (2)
  1. VEOZAH [Suspect]
     Active Substance: FEZOLINETANT
     Indication: Myasthenia gravis
     Route: 065
  2. VEOZAH [Suspect]
     Active Substance: FEZOLINETANT
     Indication: Hot flush

REACTIONS (2)
  - Myasthenia gravis [Unknown]
  - Off label use [Unknown]
